FAERS Safety Report 12001348 (Version 2)
Quarter: 2016Q1

REPORT INFORMATION
  Report Type: Spontaneous
  Country: US (occurrence: US)
  Receive Date: 20160204
  Receipt Date: 20160225
  Transmission Date: 20160526
  Serious: Yes (Death, Hospitalization, Other)
  Sender: FDA-Public Use
  Company Number: US-LUNDBECK-DKLU2009392

PATIENT
  Age: 74 Year
  Sex: Male

DRUGS (2)
  1. NORTHERA [Suspect]
     Active Substance: DROXIDOPA
     Indication: ORTHOSTATIC HYPOTENSION
     Route: 048
     Dates: start: 20150813
  2. NORTHERA [Suspect]
     Active Substance: DROXIDOPA
     Route: 048
     Dates: end: 20160122

REACTIONS (5)
  - Peritonitis [Fatal]
  - Atrial fibrillation [Fatal]
  - Hypoxia [Fatal]
  - End stage renal disease [Fatal]
  - Dyspnoea [Unknown]

NARRATIVE: CASE EVENT DATE: 201512
